FAERS Safety Report 6497946-X (Version None)
Quarter: 2009Q4

REPORT INFORMATION
  Report Type: 
  Country: None (occurrence: None)
  Receive Date: 20091215
  Receipt Date: 20091208
  Transmission Date: 20100525
  Serious: Yes (Death)
  Sender: FDA-Public Use
  Company Number: JP-ROCHE-644379

PATIENT
  Sex: Male
  Weight: 54 kg

DRUGS (18)
  1. AVASTIN [Suspect]
     Indication: RECTAL CANCER
     Route: 041
     Dates: start: 20080806, end: 20090209
  2. HEPARIN SODIUM [Concomitant]
     Dosage: ROUTE: INJECTABLE (NOT OTHERWISE SPECIFIED)
     Route: 050
     Dates: start: 20071130, end: 20090209
  3. WARFARIN SODIUM [Concomitant]
     Dosage: DRUG NAME: WARFARIN POTASSIUM
     Route: 048
     Dates: end: 20090209
  4. IRINOTECAN HCL [Concomitant]
     Route: 042
     Dates: start: 20080716, end: 20090209
  5. FLUOROURACIL [Concomitant]
     Route: 040
     Dates: start: 20080716, end: 20090209
  6. FLUOROURACIL [Concomitant]
     Route: 041
     Dates: start: 20080716, end: 20090209
  7. LEVOFOLINATE [Concomitant]
     Route: 041
     Dates: start: 20080716, end: 20090209
  8. ZANTAC [Concomitant]
     Route: 048
     Dates: end: 20090209
  9. CONIEL [Concomitant]
     Route: 048
     Dates: end: 20090209
  10. ACECOL [Concomitant]
     Route: 048
     Dates: end: 20090209
  11. CIBENOL [Concomitant]
     Route: 048
     Dates: end: 20090209
  12. PARAMIDIN [Concomitant]
     Route: 048
     Dates: end: 20090209
  13. BLADDERON [Concomitant]
     Dosage: ORAL FORMULATION (NOT OTHERWISE SPECIFIED)
     Route: 048
     Dates: end: 20090209
  14. HARNAL [Concomitant]
     Dosage: DRUG REPORTED AS HARNAL D
     Route: 048
     Dates: end: 20090209
  15. PROTECADIN [Concomitant]
     Route: 048
     Dates: end: 20090209
  16. FERO-GRADUMET [Concomitant]
     Route: 048
     Dates: end: 20090209
  17. KENALOG [Concomitant]
     Route: 061
     Dates: end: 20090209
  18. GENTAMICIN [Concomitant]
     Route: 049
     Dates: end: 20090209

REACTIONS (1)
  - AORTIC DISSECTION RUPTURE [None]
